FAERS Safety Report 9503690 (Version 2)
Quarter: 2013Q3

REPORT INFORMATION
  Report Type: Spontaneous
  Country: FR (occurrence: FR)
  Receive Date: 20130906
  Receipt Date: 20130920
  Transmission Date: 20140515
  Serious: Yes (Hospitalization, Other)
  Sender: FDA-Public Use
  Company Number: FR-ROCHE-1270966

PATIENT
  Age: 74 Year
  Sex: Female
  Weight: 80 kg

DRUGS (13)
  1. ZELBORAF [Suspect]
     Indication: MALIGNANT MELANOMA STAGE IV
     Route: 048
     Dates: end: 20130812
  2. AMIODARONE [Concomitant]
     Indication: ATRIAL FIBRILLATION
     Dosage: DAILY, EXCEPT ON SUNDAY
     Route: 048
  3. FLECAINE LP [Concomitant]
     Indication: ATRIAL FIBRILLATION
     Dosage: DAILY
     Route: 048
  4. FUROSEMIDE [Concomitant]
     Indication: HYPERTENSION
     Route: 048
  5. DIFFU-K [Concomitant]
     Indication: HYPERTENSION
     Dosage: DAILY
     Route: 048
  6. DIFFU-K [Concomitant]
     Indication: HYPOKALAEMIA
  7. TAHOR [Concomitant]
     Indication: DYSLIPIDAEMIA
     Dosage: DAILY
     Route: 048
  8. TRIATEC (FRANCE) [Concomitant]
     Indication: HYPERTENSION
     Dosage: DAILY
     Route: 048
  9. METFORMIN [Concomitant]
     Indication: DIABETES MELLITUS
     Route: 048
  10. KARDEGIC [Concomitant]
     Dosage: DAILY
     Route: 048
  11. DAFALGAN [Concomitant]
     Route: 048
  12. AMLODIPINE [Concomitant]
     Route: 065
  13. KAYEXALATE [Concomitant]

REACTIONS (2)
  - Renal failure [Unknown]
  - Renal failure acute [Recovered/Resolved]
